FAERS Safety Report 7023819-X (Version None)
Quarter: 2010Q4

REPORT INFORMATION
  Report Type: 
  Country: None (occurrence: None)
  Receive Date: 20101001
  Receipt Date: 20100830
  Transmission Date: 20110411
  Serious: No
  Sender: FDA-Public Use
  Company Number: US-BAYER-201026864NA

PATIENT
  Sex: Female

DRUGS (1)
  1. MENOSTAR [Suspect]
     Indication: OSTEOPOROSIS PROPHYLAXIS
     Route: 062
     Dates: start: 20100619

REACTIONS (2)
  - ABDOMINAL PAIN [None]
  - BREAST PAIN [None]
